FAERS Safety Report 9135268 (Version 3)
Quarter: 2013Q2

REPORT INFORMATION
  Report Type: Spontaneous
  Country: FR (occurrence: FR)
  Receive Date: 20130304
  Receipt Date: 20130412
  Transmission Date: 20140414
  Serious: Yes (Hospitalization, Other)
  Sender: FDA-Public Use
  Company Number: FR-JNJFOC-20130213438

PATIENT
  Age: 80 Year
  Sex: Male
  Weight: 80 kg

DRUGS (4)
  1. STELARA [Suspect]
     Indication: PSORIASIS
     Dosage: INITIATED 1 YEAR PRIOR TO REPORT
     Route: 058
     Dates: start: 20120202
  2. ALLOPURINOL [Concomitant]
     Indication: GOUT
     Route: 065
  3. VERAPAMIL [Concomitant]
     Indication: HYPERTENSION
     Route: 065
  4. SPIRONOLACTONE [Concomitant]
     Indication: HYPERTENSION
     Route: 065

REACTIONS (1)
  - Basal cell carcinoma [Recovered/Resolved]
